FAERS Safety Report 24870987 (Version 2)
Quarter: 2025Q4

REPORT INFORMATION
  Report Type: Spontaneous
  Country: US (occurrence: US)
  Receive Date: 20250121
  Receipt Date: 20251206
  Transmission Date: 20260118
  Serious: No
  Sender: UNITED THERAPEUTICS
  Company Number: US-UNITED THERAPEUTICS-UNT-2025-002044

PATIENT
  Sex: Female

DRUGS (1)
  1. TYVASO DPI [Suspect]
     Active Substance: TREPROSTINIL
     Indication: Product used for unknown indication
     Dosage: UNK

REACTIONS (3)
  - Illness [Unknown]
  - Drug administered in wrong device [Unknown]
  - Product distribution issue [Unknown]
